FAERS Safety Report 7086731-6 (Version None)
Quarter: 2010Q4

REPORT INFORMATION
  Report Type: 
  Country: None (occurrence: None)
  Receive Date: 20101105
  Receipt Date: 20101028
  Transmission Date: 20110411
  Serious: Yes (Death, Hospitalization, Other)
  Sender: FDA-Public Use
  Company Number: CA-ELI_LILLY_AND_COMPANY-CA201011000255

PATIENT
  Age: 1 Month
  Sex: Female

DRUGS (2)
  1. HUMULIN R [Suspect]
     Dosage: UNK, UNKNOWN
  2. HEPARIN [Concomitant]

REACTIONS (4)
  - ABSCESS [None]
  - BLOOD GLUCOSE DECREASED [None]
  - PNEUMONIA [None]
  - WRONG DRUG ADMINISTERED [None]
